FAERS Safety Report 4444917-0 (Version None)
Quarter: 2004Q3

REPORT INFORMATION
  Report Type: 
  Country: None (occurrence: None)
  Receive Date: 20040903
  Receipt Date: 20040827
  Transmission Date: 20050211
  Serious: Yes (Hospitalization)
  Sender: FDA-Public Use
  Company Number: UKP04000340

PATIENT
  Age: 88 Year
  Sex: Female

DRUGS (3)
  1. ACTONEL [Suspect]
     Indication: OSTEOPOROSIS PROPHYLAXIS
     Dosage: 35 MG, 1/WEEK, ORAL
     Route: 048
     Dates: end: 20040722
  2. THYROXINE SODIUM (LEVOTHYROXINE SODIUM) [Concomitant]
  3. CALCICHEW [Concomitant]

REACTIONS (5)
  - CIRCULATORY COLLAPSE [None]
  - DIZZINESS [None]
  - GASTRITIS EROSIVE [None]
  - HAEMOGLOBIN DECREASED [None]
  - ORTHOSTATIC HYPOTENSION [None]
